FAERS Safety Report 4403728-2 (Version None)
Quarter: 2004Q3

REPORT INFORMATION
  Report Type: 
  Country: None (occurrence: None)
  Receive Date: 20040719
  Receipt Date: 20040706
  Transmission Date: 20050211
  Serious: Yes (Life-Threatening, Hospitalization)
  Sender: FDA-Public Use
  Company Number: HQWYE902407JUL04

PATIENT
  Age: 24 Year
  Sex: Male

DRUGS (1)
  1. AVLOCARDYL (PROPRANOLOL HYDROCHLORIDE, TABLET) [Suspect]
     Dosage: ^TOOK 57 TABLETS AT ONCE^
     Route: 048
     Dates: start: 20040601

REACTIONS (3)
  - BRUGADA SYNDROME [None]
  - INTENTIONAL OVERDOSE [None]
  - SUICIDE ATTEMPT [None]
